FAERS Safety Report 9097161 (Version 1)
Quarter: 2013Q1

REPORT INFORMATION
  Report Type: Spontaneous
  Country: US (occurrence: US)
  Receive Date: 20130212
  Receipt Date: 20130212
  Transmission Date: 20140127
  Serious: Yes (Death)
  Sender: FDA-Public Use
  Company Number: US-NAPPMUNDI-USA-2013-0098545

PATIENT
  Sex: Male

DRUGS (2)
  1. HYDROMORPHONE HCL (SIMILAR TO 19-892) [Suspect]
     Indication: NECK INJURY
  2. HYDROMORPHONE HCL (SIMILAR TO 19-892) [Suspect]
     Indication: BACK INJURY

REACTIONS (2)
  - Overdose [Fatal]
  - Nervous system disorder [Fatal]
